FAERS Safety Report 10645038 (Version 3)
Quarter: 2014Q4

REPORT INFORMATION
  Report Type: Spontaneous
  Country: US (occurrence: None)
  Receive Date: 20141209
  Receipt Date: 20141229
  Transmission Date: 20150529
  Serious: Yes (Hospitalization, Other)
  Sender: FDA-Public Use
  Company Number: 2014-US-015386

PATIENT
  Age: 84 Year
  Sex: Male

DRUGS (4)
  1. XYREM [Suspect]
     Active Substance: SODIUM OXYBATE
     Indication: CATAPLEXY
     Route: 048
     Dates: start: 201409, end: 201410
  2. XYREM [Suspect]
     Active Substance: SODIUM OXYBATE
     Indication: NARCOLEPSY
     Route: 048
     Dates: start: 201409, end: 201410
  3. PROTRIPTYLINE [Concomitant]
     Active Substance: PROTRIPTYLINE
  4. BENAZEPRIL HYDROCHLORIDE. [Concomitant]
     Active Substance: BENAZEPRIL HYDROCHLORIDE

REACTIONS (12)
  - Malaise [None]
  - Constipation [None]
  - Blood pressure increased [None]
  - Nausea [None]
  - Gallbladder disorder [None]
  - Pollakiuria [None]
  - Diplopia [None]
  - Oxygen saturation decreased [None]
  - Weight decreased [None]
  - Asthenia [None]
  - Vomiting [None]
  - Product taste abnormal [None]

NARRATIVE: CASE EVENT DATE: 2014
